FAERS Safety Report 14035455 (Version 2)
Quarter: 2019Q1

REPORT INFORMATION
  Report Type: Report from Study
  Country: US (occurrence: US)
  Receive Date: 20171003
  Receipt Date: 20190311
  Transmission Date: 20190417
  Serious: Yes (Death, Other)
  Sender: FDA-Public Use
  Company Number: US-CELGENEUS-USA-20170906656

PATIENT
  Age: 77 Year
  Sex: Male
  Weight: 73.3 kg

DRUGS (2)
  1. VIDAZA [Suspect]
     Active Substance: AZACITIDINE
     Indication: MYELODYSPLASTIC SYNDROME
     Dosage: 150 MILLIGRAM
     Route: 058
     Dates: start: 20170410, end: 20170411
  2. VIDAZA [Suspect]
     Active Substance: AZACITIDINE
     Dosage: 141 MILLIGRAM
     Route: 041
     Dates: start: 20170630, end: 20170825

REACTIONS (1)
  - Transformation to acute myeloid leukaemia [Fatal]

NARRATIVE: CASE EVENT DATE: 20170913
